FAERS Safety Report 9877222 (Version 1)
Quarter: 2014Q1

REPORT INFORMATION
  Report Type: Spontaneous
  Country: GB (occurrence: GB)
  Receive Date: 20140206
  Receipt Date: 20140206
  Transmission Date: 20141002
  Serious: Yes (Other)
  Sender: FDA-Public Use
  Company Number: PHHY2014GB011507

PATIENT
  Sex: Male
  Weight: 2.05 kg

DRUGS (6)
  1. CICLOSPORIN [Suspect]
     Route: 064
  2. PREDNISOLONE [Suspect]
     Indication: IMMUNOSUPPRESSION
     Route: 064
  3. TETRACYCLINE [Suspect]
     Route: 064
  4. AZATHIOPRINE [Suspect]
     Route: 064
  5. ANGIOTENSIN CONVERTING ENZYME BLOCKERS [Suspect]
     Route: 064
  6. CALCIUM CHANNEL BLOCKERS [Suspect]
     Route: 064

REACTIONS (3)
  - Low birth weight baby [Unknown]
  - Premature baby [Unknown]
  - Foetal exposure during pregnancy [Unknown]
